FAERS Safety Report 9248064 (Version 5)
Quarter: 2014Q2

REPORT INFORMATION
  Report Type: Spontaneous
  Country: US (occurrence: US)
  Receive Date: 20130423
  Receipt Date: 20140401
  Transmission Date: 20141212
  Serious: No
  Sender: FDA-Public Use
  Company Number: US-PFIZER INC-2013123569

PATIENT
  Age: 88 Year
  Sex: Male
  Weight: 86.17 kg

DRUGS (4)
  1. VIAGRA [Suspect]
     Indication: ERECTILE DYSFUNCTION
     Dosage: 50 MG, AS NEEDED
     Route: 048
  2. VIAGRA [Suspect]
     Dosage: 100 MG, AS NEEDED
     Route: 048
     Dates: start: 2009
  3. VIAGRA [Suspect]
     Dosage: UNK
  4. VIAGRA [Suspect]

REACTIONS (4)
  - Suspected counterfeit product [Unknown]
  - Product taste abnormal [Unknown]
  - Drug ineffective [Unknown]
  - Cough [Recovered/Resolved]
